FAERS Safety Report 13744974 (Version 1)
Quarter: 2017Q3

REPORT INFORMATION
  Report Type: Spontaneous
  Country: US (occurrence: US)
  Receive Date: 20170711
  Receipt Date: 20170711
  Transmission Date: 20171127
  Serious: Yes (Life-Threatening, Hospitalization, Disabling)
  Sender: FDA-Public Use
  Company Number: None

PATIENT
  Age: 42 Year
  Sex: Female
  Weight: 62.4 kg

DRUGS (1)
  1. SOLIRIS [Suspect]
     Active Substance: ECULIZUMAB
     Indication: HAEMOLYTIC URAEMIC SYNDROME
     Dates: start: 20130104, end: 20170608

REACTIONS (5)
  - Pyrexia [None]
  - Sepsis [None]
  - Peripheral ischaemia [None]
  - Rash [None]
  - Gangrene [None]

NARRATIVE: CASE EVENT DATE: 20170618
